FAERS Safety Report 4498324-5 (Version None)
Quarter: 2004Q4

REPORT INFORMATION
  Report Type: 
  Country: None (occurrence: None)
  Receive Date: 20041104
  Receipt Date: 20041021
  Transmission Date: 20050328
  Serious: No
  Sender: FDA-Public Use
  Company Number: 2004GB02529

PATIENT
  Sex: Male

DRUGS (4)
  1. ZOLADEX [Suspect]
     Indication: PROSTATE CANCER
     Dosage: 10.8 MG SQ
     Dates: start: 20040831
  2. ANTIDEPRESSANT [Concomitant]
  3. ANTIINFLAMMATORY [Concomitant]
  4. MORPHINE SULFATE [Concomitant]

REACTIONS (2)
  - EMOTIONAL DISORDER [None]
  - PARANOIA [None]
